FAERS Safety Report 7764372-2 (Version None)
Quarter: 2011Q3

REPORT INFORMATION
  Report Type: 
  Country: None (occurrence: None)
  Receive Date: 20110921
  Receipt Date: 20110908
  Transmission Date: 20111222
  Serious: Yes (Hospitalization)
  Sender: FDA-Public Use
  Company Number: DE-ELI_LILLY_AND_COMPANY-DE201109001882

PATIENT
  Age: 73 Year
  Sex: Male

DRUGS (3)
  1. CORTISONE ACETATE [Concomitant]
     Dosage: UNK, QD
  2. MORPHINE [Concomitant]
  3. FORTEO [Suspect]
     Indication: OSTEOPOROSIS
     Dosage: UNK, QD
     Route: 058
     Dates: start: 20110809, end: 20110907

REACTIONS (1)
  - HIP SURGERY [None]
